FAERS Safety Report 10388115 (Version 2)
Quarter: 2014Q3

REPORT INFORMATION
  Report Type: Spontaneous
  Country: US (occurrence: US)
  Receive Date: 20140815
  Receipt Date: 20140827
  Transmission Date: 20150326
  Serious: Yes (Hospitalization)
  Sender: FDA-Public Use
  Company Number: PHHY2014US101590

PATIENT
  Weight: 1.48 kg

DRUGS (10)
  1. CICLOSPORIN [Suspect]
     Active Substance: CYCLOSPORINE
     Route: 064
  2. CLOBETASOL [Suspect]
     Active Substance: CLOBETASOL
     Route: 064
  3. PROPOFOL. [Suspect]
     Active Substance: PROPOFOL
     Route: 064
  4. VANCOMYCIN [Suspect]
     Active Substance: VANCOMYCIN
     Route: 064
  5. HYDROMORPHONE [Suspect]
     Active Substance: HYDROMORPHONE
     Route: 064
  6. OXYGEN. [Suspect]
     Active Substance: OXYGEN
  7. MORPHINE [Suspect]
     Active Substance: MORPHINE
     Route: 064
  8. PREDNISONE. [Suspect]
     Active Substance: PREDNISONE
     Route: 064
  9. SUCCINYLCHOLINE CHLORIDE [Suspect]
     Active Substance: SUCCINYLCHOLINE CHLORIDE
     Route: 064
  10. SEVOFLURANE. [Suspect]
     Active Substance: SEVOFLURANE
     Route: 064

REACTIONS (7)
  - Apnoea [Unknown]
  - Respiratory disorder [Unknown]
  - Foetal growth restriction [Unknown]
  - Small for dates baby [Unknown]
  - Foetal exposure during pregnancy [Unknown]
  - Premature baby [Unknown]
  - Low birth weight baby [Unknown]
